FAERS Safety Report 6699856-1 (Version None)
Quarter: 2010Q2

REPORT INFORMATION
  Report Type: 
  Country: None (occurrence: None)
  Receive Date: 20100427
  Receipt Date: 20100427
  Transmission Date: 20101027
  Serious: Yes (Hospitalization)
  Sender: FDA-Public Use
  Company Number: None

PATIENT
  Age: 77 Year
  Sex: Male
  Weight: 42.4113 kg

DRUGS (3)
  1. ACETAMINOPHEN AND CODEINE PHOSPHATE [Suspect]
     Indication: HAEMATURIA
     Dosage: 10 MG QUID PO
     Route: 048
     Dates: start: 20100417, end: 20100419
  2. ACETAMINOPHEN AND CODEINE PHOSPHATE [Suspect]
     Indication: MOANING
     Dosage: 10 MG QUID PO
     Route: 048
     Dates: start: 20100417, end: 20100419
  3. TRAMADOL HCL [Suspect]
     Indication: PAIN
     Dosage: 25 MG BID PO
     Route: 048
     Dates: start: 20091006, end: 20100422

REACTIONS (4)
  - CONFUSIONAL STATE [None]
  - CONSTIPATION [None]
  - DRUG INTERACTION [None]
  - MENTAL STATUS CHANGES [None]
